FAERS Safety Report 12994765 (Version 1)
Quarter: 2016Q4

REPORT INFORMATION
  Report Type: Spontaneous
  Country: RO (occurrence: ES)
  Receive Date: 20161202
  Receipt Date: 20161202
  Transmission Date: 20170207
  Serious: Yes (Other)
  Sender: FDA-Public Use
  Company Number: RO-PFIZER INC-2016556229

PATIENT
  Age: 2 Year
  Sex: Male

DRUGS (5)
  1. LEVETIRACETAM. [Suspect]
     Active Substance: LEVETIRACETAM
     Indication: INFANTILE SPASMS
  2. ACTH [Suspect]
     Active Substance: CORTICOTROPIN
     Indication: INFANTILE SPASMS
  3. VIGABATRIN [Suspect]
     Active Substance: VIGABATRIN
     Indication: INFANTILE SPASMS
  4. LEVETIRACETAM. [Suspect]
     Active Substance: LEVETIRACETAM
  5. BACLOFEN. [Suspect]
     Active Substance: BACLOFEN
     Indication: INFANTILE SPASMS

REACTIONS (1)
  - Cushing^s syndrome [Unknown]
